FAERS Safety Report 5884172-8 (Version None)
Quarter: 2008Q3

REPORT INFORMATION
  Report Type: 
  Country: None (occurrence: None)
  Receive Date: 20080911
  Receipt Date: 20080902
  Transmission Date: 20090109
  Serious: No
  Sender: FDA-Public Use
  Company Number: 2008AL010095

PATIENT

DRUGS (3)
  1. GABAPENTIN [Suspect]
     Indication: PAIN
  2. OXYCONTIN [Concomitant]
  3. PLACEBO [Concomitant]

REACTIONS (2)
  - SURGERY [None]
  - THERAPEUTIC PROCEDURE [None]
